FAERS Safety Report 6316106-6 (Version None)
Quarter: 2009Q3

REPORT INFORMATION
  Report Type: 
  Country: None (occurrence: None)
  Receive Date: 20090820
  Receipt Date: 20090813
  Transmission Date: 20100115
  Serious: Yes (Other)
  Sender: FDA-Public Use
  Company Number: PHHY2009CA28530

PATIENT
  Sex: Female

DRUGS (7)
  1. SANDOSTATIN LAR [Suspect]
     Indication: ACROMEGALY
     Dosage: 10 MG EVERY 4 WEEKS
     Route: 030
     Dates: start: 19990901
  2. DOSTINEX [Concomitant]
     Dosage: 0.5 MG, QW
  3. SERC [Concomitant]
     Dosage: 8 MG, PRN
  4. PREVACID [Concomitant]
     Dosage: 30
  5. TRIAZIDE [Concomitant]
  6. NORVASC [Concomitant]
     Dosage: 5 MG, QD
  7. CAD [Concomitant]
     Dosage: BID

REACTIONS (5)
  - ANXIETY [None]
  - COUGH [None]
  - DEPRESSIVE SYMPTOM [None]
  - DIZZINESS [None]
  - HEART RATE DECREASED [None]
